FAERS Safety Report 4943889-X (Version None)
Quarter: 2006Q1

REPORT INFORMATION
  Report Type: 
  Country: None (occurrence: None)
  Receive Date: 20060310
  Receipt Date: 20060227
  Transmission Date: 20060701
  Serious: Yes (Other)
  Sender: FDA-Public Use
  Company Number: 2006028932

PATIENT
  Age: 56 Year
  Sex: Male
  Weight: 79.3795 kg

DRUGS (2)
  1. CELEBREX [Suspect]
     Indication: ARTHRITIS
  2. ULTRAM [Concomitant]

REACTIONS (5)
  - BLADDER CANCER STAGE IV [None]
  - CHEST PAIN [None]
  - PARAESTHESIA [None]
  - PENIS DISORDER [None]
  - SKIN NODULE [None]
